FAERS Safety Report 21295173 (Version 1)
Quarter: 2022Q3

REPORT INFORMATION
  Report Type: Spontaneous
  Country: US (occurrence: US)
  Receive Date: 20220905
  Receipt Date: 20220905
  Transmission Date: 20221027
  Serious: No
  Sender: FDA-Public Use
  Company Number: US-KARYOPHARM-2022KPT000937

PATIENT

DRUGS (12)
  1. XPOVIO [Suspect]
     Active Substance: SELINEXOR
     Indication: Plasma cell myeloma
     Dosage: 80 MG, 2X/WEEK
     Route: 048
  2. ELOTUZUMAB [Concomitant]
     Active Substance: ELOTUZUMAB
  3. FAMOTIDINE [Concomitant]
     Active Substance: FAMOTIDINE
  4. MEGESTROL ACETATE [Concomitant]
     Active Substance: MEGESTROL ACETATE
  5. NEUPOGEN [Concomitant]
     Active Substance: FILGRASTIM
  6. ONDANSETRON [Concomitant]
     Active Substance: ONDANSETRON
  7. POMALYST [Concomitant]
     Active Substance: POMALIDOMIDE
  8. PERCOCET [Concomitant]
     Active Substance: ACETAMINOPHEN\OXYCODONE HYDROCHLORIDE
  9. REVLIMID [Concomitant]
     Active Substance: LENALIDOMIDE
  10. PREVACID [Concomitant]
     Active Substance: LANSOPRAZOLE
  11. TRAMADOL [Concomitant]
     Active Substance: TRAMADOL
  12. ZOLEDRONIC ACID [Concomitant]
     Active Substance: ZOLEDRONIC ACID

REACTIONS (3)
  - Asthenia [Unknown]
  - Nausea [Unknown]
  - Vomiting [Unknown]

NARRATIVE: CASE EVENT DATE: 20220101
